FAERS Safety Report 7021662-9 (Version None)
Quarter: 2010Q3

REPORT INFORMATION
  Report Type: 
  Country: None (occurrence: None)
  Receive Date: 20100928
  Receipt Date: 20100915
  Transmission Date: 20110219
  Serious: Yes (Other)
  Sender: FDA-Public Use
  Company Number: 018927

PATIENT
  Age: 37 Year
  Sex: Male

DRUGS (5)
  1. ROTIGOTINE (ROTIGOTINE) [Suspect]
     Dosage: (4 MG)
  2. LEVODOPA (LEVODOPA) [Suspect]
     Dosage: (300 MG) ; (900 MG)
  3. CABERGOLINE [Suspect]
     Dosage: (2 MG) ; (4 MG) ; (SELF MEDICATED TWICE THE DOSAGE)
  4. BENZATROPINE [Concomitant]
  5. TRIHEXYPHENIDYL HCL [Concomitant]

REACTIONS (8)
  - DELUSION [None]
  - DEPRESSION [None]
  - INCORRECT DOSE ADMINISTERED [None]
  - JEALOUS DELUSION [None]
  - LEGAL PROBLEM [None]
  - MOTOR DYSFUNCTION [None]
  - SELF-MEDICATION [None]
  - SEXUAL DYSFUNCTION [None]
